FAERS Safety Report 18522752 (Version 1)
Quarter: 2020Q4

REPORT INFORMATION
  Report Type: Spontaneous
  Country: MY (occurrence: MY)
  Receive Date: 20201119
  Receipt Date: 20201119
  Transmission Date: 20210114
  Serious: Yes (Life-Threatening, Hospitalization)
  Sender: FDA-Public Use
  Company Number: MY-MYLANLABS-2020M1095461

PATIENT
  Age: 50 Year
  Sex: Female

DRUGS (3)
  1. BLEOMYCIN [Suspect]
     Active Substance: BLEOMYCIN SULFATE
     Indication: OVARIAN GRANULOSA CELL TUMOUR
     Dosage: RECEIVED SIX CYCLES
     Route: 065
  2. ETOPOSIDE. [Suspect]
     Active Substance: ETOPOSIDE
     Indication: OVARIAN GRANULOSA CELL TUMOUR
     Dosage: RECEIVED TWO CYCLES
     Route: 065
  3. CISPLATIN. [Suspect]
     Active Substance: CISPLATIN
     Indication: OVARIAN GRANULOSA CELL TUMOUR
     Dosage: RECEIVED TWO CYCLES
     Route: 065

REACTIONS (1)
  - Small intestinal perforation [Recovered/Resolved]
